FAERS Safety Report 15994116 (Version 1)
Quarter: 2019Q1

REPORT INFORMATION
  Report Type: Spontaneous
  Country: US (occurrence: US)
  Receive Date: 20190222
  Receipt Date: 20190222
  Transmission Date: 20190418
  Serious: No
  Sender: FDA-Public Use
  Company Number: US-AMGEN-USASP2019026763

PATIENT
  Age: 28 Year
  Sex: Female

DRUGS (2)
  1. VIOXX [Concomitant]
     Active Substance: ROFECOXIB
     Dosage: UNK
  2. ENBREL [Suspect]
     Active Substance: ETANERCEPT
     Indication: JUVENILE IDIOPATHIC ARTHRITIS
     Dosage: 0.6 ML, 2 TIMES/WK
     Route: 065
     Dates: start: 2004

REACTIONS (1)
  - Wrong technique in product usage process [Unknown]
